FAERS Safety Report 5933624-0 (Version None)
Quarter: 2008Q4

REPORT INFORMATION
  Report Type: 
  Country: None (occurrence: None)
  Receive Date: 20081029
  Receipt Date: 20081017
  Transmission Date: 20090506
  Serious: Yes (Other)
  Sender: FDA-Public Use
  Company Number: ES-JNJFOC-20081006026

PATIENT
  Age: 65 Year
  Sex: Male

DRUGS (5)
  1. ZALDIAR [Suspect]
     Indication: SELF-MEDICATION
     Route: 048
  2. BISOLVON COMPOSITUM [Suspect]
     Indication: COUGH
     Route: 048
  3. EQUISETUM ARVENSE [Concomitant]
     Route: 065
  4. ALDACTONE [Concomitant]
     Route: 048
  5. SEGURIL [Concomitant]
     Route: 048

REACTIONS (3)
  - DISORIENTATION [None]
  - HYPERKALAEMIA [None]
  - RENAL FAILURE ACUTE [None]
